FAERS Safety Report 5282305-8 (Version None)
Quarter: 2007Q1

REPORT INFORMATION
  Report Type: 
  Country: None (occurrence: None)
  Receive Date: 20070331
  Receipt Date: 20061129
  Transmission Date: 20070707
  Serious: Yes (Other)
  Sender: FDA-Public Use
  Company Number: US-PFIZER INC-2007023988

PATIENT
  Sex: Female

DRUGS (2)
  1. FLAGYL [Suspect]
     Indication: BACTERIAL INFECTION
  2. PENICILLIN [Concomitant]
     Indication: BACTERIAL INFECTION

REACTIONS (1)
  - INTRA-UTERINE DEATH [None]
